FAERS Safety Report 8139723-X (Version None)
Quarter: 2012Q1

REPORT INFORMATION
  Report Type: 
  Country: None (occurrence: None)
  Receive Date: 20120215
  Receipt Date: 20120213
  Transmission Date: 20120608
  Serious: Yes (Other)
  Sender: FDA-Public Use
  Company Number: PHEH2011US02879

PATIENT
  Sex: Female
  Weight: 113.38 kg

DRUGS (6)
  1. SYMBICORT [Concomitant]
     Indication: ASTHMA
     Dosage: BUDESONIDE - 80 MCG, FORMOTEROL FUMARATE-4.5 MCG/ACT
     Dates: start: 20110606
  2. LYRICA [Concomitant]
     Indication: PAIN
     Dosage: 75 MG, TID
     Route: 048
     Dates: start: 20101021
  3. AMANTADINE HCL [Concomitant]
     Dosage: 100 MG, BID
  4. NUVIGIL [Concomitant]
     Indication: FATIGUE
     Dosage: 250 MG, QD
     Route: 048
     Dates: start: 20110408
  5. GILENYA [Suspect]
     Indication: MULTIPLE SCLEROSIS
     Dosage: 0.5 MG, QD
     Route: 048
     Dates: start: 20110706
  6. ORTHO-NOVUM [Concomitant]
     Indication: CONTRACEPTION
     Dosage: UNK UKN, QD

REACTIONS (10)
  - BLINDNESS UNILATERAL [None]
  - HEART RATE INCREASED [None]
  - VISUAL ACUITY REDUCED [None]
  - MULTIPLE SCLEROSIS RELAPSE [None]
  - HEADACHE [None]
  - DIZZINESS [None]
  - CHEST PAIN [None]
  - VISION BLURRED [None]
  - BLOOD PRESSURE INCREASED [None]
  - VISUAL FIELD DEFECT [None]
